FAERS Safety Report 12572943 (Version 2)
Quarter: 2018Q4

REPORT INFORMATION
  Report Type: Spontaneous
  Country: US (occurrence: US)
  Receive Date: 20160720
  Receipt Date: 20181224
  Transmission Date: 20190204
  Serious: Yes (Other)
  Sender: FDA-Public Use
  Company Number: US-AMGEN-USASP2016091115

PATIENT
  Age: 68 Year
  Sex: Female

DRUGS (2)
  1. PROCRIT [Suspect]
     Active Substance: ERYTHROPOIETIN
     Indication: REFRACTORY ANAEMIA WITH RINGED SIDEROBLASTS
     Dosage: 80000 UNIT, QWK
     Route: 065
  2. ARANESP [Suspect]
     Active Substance: DARBEPOETIN ALFA
     Indication: REFRACTORY ANAEMIA WITH RINGED SIDEROBLASTS
     Dosage: UNK UNK, Q3WK
     Route: 065
     Dates: start: 2013

REACTIONS (2)
  - Haemoglobin decreased [Unknown]
  - Off label use [Unknown]
